FAERS Safety Report 23553099 (Version 1)
Quarter: 2024Q1

REPORT INFORMATION
  Report Type: Spontaneous
  Country: US (occurrence: None)
  Receive Date: 20240221
  Receipt Date: 20240221
  Transmission Date: 20240409
  Serious: Yes (Death)
  Sender: FDA-Public Use
  Company Number: None

PATIENT
  Age: 77 Year
  Sex: Male
  Weight: 83 kg

DRUGS (1)
  1. BREXUCABTAGENE AUTOLEUCEL [Suspect]
     Active Substance: BREXUCABTAGENE AUTOLEUCEL

REACTIONS (18)
  - Immune effector cell-associated neurotoxicity syndrome [None]
  - Cytokine release syndrome [None]
  - Aggression [None]
  - Agitation [None]
  - Encephalopathy [None]
  - Aphasia [None]
  - Intracranial pressure increased [None]
  - Toxicity to various agents [None]
  - Therapy cessation [None]
  - Hepatorenal syndrome [None]
  - Multiple organ dysfunction syndrome [None]
  - Hypofibrinogenaemia [None]
  - Gastrointestinal haemorrhage [None]
  - Muscle haemorrhage [None]
  - Cerebrospinal fluid leakage [None]
  - Cytomegalovirus viraemia [None]
  - Staphylococcal bacteraemia [None]
  - Neutropenia [None]

NARRATIVE: CASE EVENT DATE: 20240126
